FAERS Safety Report 4857063-9 (Version None)
Quarter: 2005Q4

REPORT INFORMATION
  Report Type: 
  Country: None (occurrence: None)
  Receive Date: 20051219
  Receipt Date: 20041220
  Transmission Date: 20060501
  Serious: No
  Sender: FDA-Public Use
  Company Number: US-GLAXOSMITHKLINE-A0537958A

PATIENT
  Age: 66 Year
  Sex: Male

DRUGS (2)
  1. NICODERM CQ [Suspect]
  2. NICODERM CQ [Suspect]
     Dates: start: 20041125

REACTIONS (2)
  - APPLICATION SITE REACTION [None]
  - RASH [None]
